FAERS Safety Report 11775306 (Version 5)
Quarter: 2016Q1

REPORT INFORMATION
  Report Type: Spontaneous
  Country: JP (occurrence: JP)
  Receive Date: 20151125
  Receipt Date: 20160322
  Transmission Date: 20160525
  Serious: Yes (Hospitalization, Other)
  Sender: FDA-Public Use
  Company Number: JP-ABBVIE-15K-087-1505474-00

PATIENT
  Age: 33 Year
  Sex: Male
  Weight: 47 kg

DRUGS (7)
  1. HUMIRA [Suspect]
     Active Substance: ADALIMUMAB
     Route: 058
     Dates: start: 20140122, end: 201503
  2. FAMOTIDINE. [Concomitant]
     Active Substance: FAMOTIDINE
     Indication: ARTHRITIS
     Route: 048
     Dates: start: 20130713
  3. MTX [Suspect]
     Active Substance: METHOTREXATE SODIUM
     Indication: PSORIATIC ARTHROPATHY
     Route: 065
     Dates: start: 20070926, end: 20130213
  4. CELECOXIB. [Concomitant]
     Active Substance: CELECOXIB
     Indication: ARTHRITIS
     Route: 048
     Dates: start: 20130424
  5. HUMIRA [Suspect]
     Active Substance: ADALIMUMAB
     Indication: PSORIATIC ARTHROPATHY
     Route: 058
     Dates: start: 20110119, end: 20130213
  6. PREDNISOLONE. [Concomitant]
     Active Substance: PREDNISOLONE
     Indication: PSORIATIC ARTHROPATHY
     Dosage: 2 MG + 1 MG DAILY
     Route: 048
     Dates: start: 20130507
  7. BUCILLAMINE [Concomitant]
     Active Substance: BUCILLAMINE
     Indication: ARTHRITIS
     Route: 048
     Dates: start: 20130713

REACTIONS (3)
  - Arthropathy [Unknown]
  - Hodgkin^s disease [Recovered/Resolved]
  - Lymphoproliferative disorder [Recovering/Resolving]

NARRATIVE: CASE EVENT DATE: 201302
